FAERS Safety Report 4917726-3 (Version None)
Quarter: 2006Q1

REPORT INFORMATION
  Report Type: 
  Country: None (occurrence: None)
  Receive Date: 20060221
  Receipt Date: 20060208
  Transmission Date: 20060701
  Serious: Yes (Hospitalization)
  Sender: FDA-Public Use
  Company Number: DE-BOEHRINGER INGELHEIM PHARMACEUTICALS, INC.-2006-DE-00771BY

PATIENT
  Sex: Male

DRUGS (2)
  1. KINZALKOMB [Suspect]
     Indication: HYPERTENSION
     Route: 048
     Dates: start: 20040426, end: 20041020
  2. KINZALKOMB [Suspect]
     Route: 048
     Dates: start: 20041103

REACTIONS (2)
  - DUODENAL ULCER HAEMORRHAGE [None]
  - HYPERTENSIVE CRISIS [None]
